FAERS Safety Report 4941591-1 (Version None)
Quarter: 2006Q1

REPORT INFORMATION
  Report Type: 
  Country: None (occurrence: None)
  Receive Date: 20060313
  Receipt Date: 20060306
  Transmission Date: 20060701
  Serious: Yes (Hospitalization)
  Sender: FDA-Public Use
  Company Number: GB-AVENTIS-200612207GDDC

PATIENT
  Sex: Male

DRUGS (1)
  1. NASACORT [Suspect]
     Route: 045

REACTIONS (1)
  - UNEVALUABLE EVENT [None]
